FAERS Safety Report 21557476 (Version 1)
Quarter: 2022Q4

REPORT INFORMATION
  Report Type: Spontaneous
  Country: TN (occurrence: TN)
  Receive Date: 20221105
  Receipt Date: 20221105
  Transmission Date: 20230112
  Serious: Yes (Other)
  Sender: FDA-Public Use
  Company Number: TN-Accord-284169

PATIENT
  Age: 23 Year
  Sex: Female

DRUGS (2)
  1. OXALIPLATIN [Suspect]
     Active Substance: OXALIPLATIN
     Indication: Adenocarcinoma of appendix
     Dosage: INTRAVENOUSLY OVER 2 HOURS ON DAY 1 AND DAY 15
     Dates: start: 201811
  2. CAPECITABINE [Concomitant]
     Active Substance: CAPECITABINE
     Indication: Adenocarcinoma of appendix
     Dates: start: 201811

REACTIONS (15)
  - Myelitis transverse [Recovered/Resolved]
  - Muscle spasms [Recovered/Resolved]
  - Dysaesthesia pharynx [Recovered/Resolved]
  - Paraesthesia [Recovered/Resolved]
  - Dyspnoea [Recovered/Resolved]
  - Meningitis aseptic [Recovered/Resolved]
  - Hemiparesis [Recovered/Resolved]
  - Hemihypoaesthesia [Recovered/Resolved]
  - Optic neuropathy [Recovered/Resolved]
  - Vision blurred [Recovered/Resolved]
  - Diplopia [Recovered/Resolved]
  - Photophobia [Recovered/Resolved]
  - Eyelid ptosis [Recovered/Resolved]
  - Nystagmus [Recovered/Resolved]
  - Strabismus [Recovered/Resolved]

NARRATIVE: CASE EVENT DATE: 20190201
